FAERS Safety Report 6271553-6 (Version None)
Quarter: 2009Q3

REPORT INFORMATION
  Report Type: 
  Country: None (occurrence: None)
  Receive Date: 20090717
  Receipt Date: 20090706
  Transmission Date: 20100115
  Serious: Yes (Other)
  Sender: FDA-Public Use
  Company Number: US-MYLANLABS-2009S1011972

PATIENT
  Sex: Male

DRUGS (2)
  1. FENTANYL TRANSDERMAL SYSTEM [Suspect]
     Indication: BACK PAIN
     Route: 062
     Dates: start: 20080101
  2. FENTANYL TRANSDERMAL SYSTEM [Suspect]
     Indication: RENAL PAIN
     Route: 062
     Dates: start: 20080101

REACTIONS (4)
  - ATRIAL FIBRILLATION [None]
  - DEPENDENCE [None]
  - DRUG ABUSE [None]
  - DRUG WITHDRAWAL SYNDROME [None]
